FAERS Safety Report 14559102 (Version 2)
Quarter: 2018Q1

REPORT INFORMATION
  Report Type: Spontaneous
  Country: US (occurrence: US)
  Receive Date: 20180221
  Receipt Date: 20180323
  Transmission Date: 20180509
  Serious: No
  Sender: FDA-Public Use
  Company Number: US-TEVA-2018-US-852710

PATIENT

DRUGS (1)
  1. ENOXAPARIN [Suspect]
     Active Substance: ENOXAPARIN
     Dosage: 40 MG / 0.4 ML
     Route: 065
     Dates: end: 201801

REACTIONS (3)
  - Product physical issue [Unknown]
  - Product quality issue [Unknown]
  - Injection site bruising [Unknown]
